FAERS Safety Report 17769837 (Version 12)
Quarter: 2020Q3

REPORT INFORMATION
  Report Type: Spontaneous
  Country: US (occurrence: US)
  Receive Date: 20200512
  Receipt Date: 20200925
  Transmission Date: 20201102
  Serious: Yes (Other)
  Sender: FDA-Public Use
  Company Number: US-PFIZER INC-2015474652

PATIENT
  Age: 64 Year
  Sex: Female
  Weight: 79.38 kg

DRUGS (24)
  1. DILANTIN [Suspect]
     Active Substance: PHENYTOIN
     Dosage: 30 MG, 2X/WEEK (MONDAY AND THURSDAY MORNINGS WITH THE 100 MG CAPSULE)
     Route: 048
     Dates: start: 20200514
  2. DILANTIN [Suspect]
     Active Substance: PHENYTOIN
     Dosage: 100 MG, 2X/DAY (100 MG 1 IN MORNING AND 1 IN EVENING)
  3. VITAMIN D [COLECALCIFEROL] [Concomitant]
     Active Substance: CHOLECALCIFEROL
     Dosage: 2000 IU, 1X/DAY
  4. CLARITIN [Concomitant]
     Active Substance: LORATADINE
     Indication: HYPERSENSITIVITY
     Dosage: UNK
  5. LYRICA [Concomitant]
     Active Substance: PREGABALIN
     Indication: SEIZURE
     Dosage: 8 DF, 1X/DAY
  6. DILANTIN [Suspect]
     Active Substance: PHENYTOIN
     Indication: FOCAL DYSCOGNITIVE SEIZURES
     Dosage: UNK
     Dates: start: 1988
  7. DILANTIN [Suspect]
     Active Substance: PHENYTOIN
     Indication: SEIZURE
     Dosage: 30 MG, 1X/DAY (30MG, ONCE A DAY IN THE MORNING AT 5:30AM)
  8. LAMICTAL [Concomitant]
     Active Substance: LAMOTRIGINE
     Indication: SEIZURE
     Dosage: 200 MG, 2X/DAY
     Route: 048
     Dates: start: 1988
  9. LYRICA [Concomitant]
     Active Substance: PREGABALIN
     Dosage: 75 MG (8 TIMES A DAY)
  10. DENTA 5000 PLUS [Concomitant]
     Active Substance: SODIUM FLUORIDE
     Dosage: UNK
  11. CITRACAL CALCIUM PEARLS + D3 [Concomitant]
     Dosage: 2 DF, 1X/DAY
  12. DILANTIN [Suspect]
     Active Substance: PHENYTOIN
     Dosage: 300 MG, DAILY [TAKE 1 CAPSULE (100 MG) BY MOUTH EVERY MORNING AND 2 CAPSULES (200 MG) EVERY EVENING]
     Route: 048
     Dates: start: 20200512
  13. KEPPRA [Concomitant]
     Active Substance: LEVETIRACETAM
     Indication: SEIZURE
     Dosage: UNK (5 A DAY)
     Dates: start: 1988
  14. NYSTATIN. [Concomitant]
     Active Substance: NYSTATIN
     Dosage: UNK (POWDER)
  15. DILANTIN [Suspect]
     Active Substance: PHENYTOIN
     Indication: PARTIAL SEIZURES
     Dosage: 300 MG, DAILY (1 CAP EVERY MORNING AND 2 CAP EVERY EVENING)
  16. DILANTIN [Suspect]
     Active Substance: PHENYTOIN
     Indication: EPILEPSY
     Dosage: 100 MG, 2X/DAY
  17. DILANTIN [Suspect]
     Active Substance: PHENYTOIN
     Indication: EPILEPSY
     Dosage: 30 MG, DAILY (1 CAP EVERY MORNING ALONG WITH 100 MG CAP)
  18. DILANTIN [Suspect]
     Active Substance: PHENYTOIN
     Dosage: 30 MG, 2X/WEEK (ONLY TAKES 30MG, 2 TABLETS A WEEK ? 30MG TWICE A WEEK/ EVERY MONDAY AND THURSDAY)
     Route: 048
  19. DILANTIN [Suspect]
     Active Substance: PHENYTOIN
     Dosage: 300 MG, DAILY (1 CAPSULE IN THE MORNING AND 2 CAPSULE IN THE EVENING)
     Dates: start: 20190114
  20. LYRICA [Concomitant]
     Active Substance: PREGABALIN
     Dosage: UNK
  21. DILANTIN [Suspect]
     Active Substance: PHENYTOIN
     Dosage: 30 MG, 2X/WEEK (MONDAY AND THURSDAY MORNINGS WITH THE 100 MG CAPSULE)
     Route: 048
     Dates: start: 20200514
  22. DILANTIN [Suspect]
     Active Substance: PHENYTOIN
     Dosage: 300 MG, DAILY (100MG, SHE TAKES 1 AT 5:30AM AND 2 100MG AT 9:30 AT NIGHT/300MG DAILY )
     Route: 048
  23. KEPPRA [Concomitant]
     Active Substance: LEVETIRACETAM
     Dosage: 2500 MG, DAILY (2 TABLETS IN THE MORNING, AND 3 TABLETS IN THE EVENING)
     Route: 048
  24. ALEVE [Concomitant]
     Active Substance: NAPROXEN SODIUM
     Indication: HEADACHE
     Dosage: UNK

REACTIONS (11)
  - Expired product administered [Unknown]
  - Ligament sprain [Unknown]
  - Anticonvulsant drug level increased [Unknown]
  - Product container issue [Unknown]
  - Confusional state [Unknown]
  - Loss of consciousness [Unknown]
  - Product prescribing error [Unknown]
  - Fall [Unknown]
  - Seizure [Recovering/Resolving]
  - Joint injury [Unknown]
  - Pain in extremity [Unknown]

NARRATIVE: CASE EVENT DATE: 2019
